FAERS Safety Report 19741664 (Version 6)
Quarter: 2023Q1

REPORT INFORMATION
  Report Type: Spontaneous
  Country: JP (occurrence: None)
  Receive Date: 20210824
  Receipt Date: 20230227
  Transmission Date: 20230417
  Serious: Yes (Life-Threatening, Hospitalization, Other)
  Sender: FDA-Public Use
  Company Number: 2021A320949

PATIENT
  Age: 55 Year
  Sex: Male

DRUGS (22)
  1. IMFINZI [Suspect]
     Active Substance: DURVALUMAB
     Indication: Small cell lung cancer
     Route: 041
     Dates: start: 20210209, end: 20210209
  2. CISPLATIN [Suspect]
     Active Substance: CISPLATIN
     Indication: Small cell lung cancer
     Route: 065
     Dates: start: 20210209, end: 20210209
  3. ETOPOSIDE [Concomitant]
     Active Substance: ETOPOSIDE
     Indication: Small cell lung cancer
     Dosage: 195 MG, ON DAY 1, 2 AND 3 OF EACH CYCLE, EVERY 3 WEEKS
     Route: 065
     Dates: start: 20210209, end: 20210211
  4. PITAVASTATIN CALCIUM [Concomitant]
     Active Substance: PITAVASTATIN CALCIUM
     Indication: Small cell lung cancer
     Route: 048
     Dates: end: 20210728
  5. EPLERENONE [Concomitant]
     Active Substance: EPLERENONE
     Indication: Hypertension
     Route: 065
     Dates: end: 20210728
  6. FEBUXOSTAT [Concomitant]
     Active Substance: FEBUXOSTAT
     Indication: Hyperuricaemia
     Route: 048
     Dates: end: 20210728
  7. FUROSEMIDE [Concomitant]
     Active Substance: FUROSEMIDE
     Indication: Atrial fibrillation
     Route: 048
     Dates: end: 20210804
  8. FUROSEMIDE [Concomitant]
     Active Substance: FUROSEMIDE
     Indication: Cardiac failure chronic
     Route: 048
     Dates: end: 20210804
  9. TENELIGLIPTIN [Concomitant]
     Active Substance: TENELIGLIPTIN
     Indication: Diabetes mellitus
     Route: 048
     Dates: end: 20210728
  10. DABIGATRAN ETEXILATE MESYLATE [Concomitant]
     Active Substance: DABIGATRAN ETEXILATE MESYLATE
     Indication: Atrial fibrillation
     Route: 048
     Dates: end: 20210520
  11. DABIGATRAN ETEXILATE MESYLATE [Concomitant]
     Active Substance: DABIGATRAN ETEXILATE MESYLATE
     Indication: Cardiac failure chronic
     Route: 048
     Dates: end: 20210520
  12. BEPOTASTINE BESYLATE [Concomitant]
     Active Substance: BEPOTASTINE BESYLATE
     Indication: Seasonal allergy
     Route: 048
     Dates: end: 20210312
  13. OXYCODONE HYDROCHLORIDE [Concomitant]
     Active Substance: OXYCODONE HYDROCHLORIDE
     Route: 048
     Dates: start: 20210119, end: 20210804
  14. OXINORM [Concomitant]
     Dosage: 2.5MG AS REQUIRED
     Route: 048
     Dates: start: 20210119, end: 20210804
  15. LOXOPROFEN SODIUM [Concomitant]
     Active Substance: LOXOPROFEN SODIUM
     Route: 048
     Dates: start: 20210119, end: 20210728
  16. NOVAMIN [Concomitant]
     Indication: Prophylaxis of nausea and vomiting
     Route: 048
     Dates: start: 20210119, end: 20210325
  17. MAGNESIUM OXIDE [Concomitant]
     Active Substance: MAGNESIUM OXIDE
     Indication: Constipation
     Dosage: 330 MG - 660 MG/DOSE THREE TIMES A DAY
     Route: 048
     Dates: start: 20210202, end: 20210804
  18. APREPITANT [Concomitant]
     Active Substance: APREPITANT
     Indication: Prophylaxis of nausea and vomiting
     Route: 048
     Dates: start: 20210209, end: 20210209
  19. DEXAMETHASONE SODIUM PHOSPHATE [Concomitant]
     Active Substance: DEXAMETHASONE SODIUM PHOSPHATE
     Dosage: 9.9 MG - 13.2 MG/DOSE DAILY
     Route: 042
     Dates: start: 20210209, end: 20210212
  20. ALOXI [Concomitant]
     Active Substance: PALONOSETRON HYDROCHLORIDE
     Route: 042
     Dates: start: 20210209, end: 20210209
  21. MANNITOL-S [Concomitant]
     Route: 042
     Dates: start: 20210209, end: 20210209
  22. MAGNESIUM SULFATE [Concomitant]
     Active Substance: MAGNESIUM SULFATE
     Route: 042
     Dates: start: 20210209, end: 20210209

REACTIONS (4)
  - Neutrophil count decreased [Recovered/Resolved]
  - Immune thrombocytopenia [Recovered/Resolved]
  - Cellulitis [Recovered/Resolved]
  - Adrenal insufficiency [Not Recovered/Not Resolved]

NARRATIVE: CASE EVENT DATE: 20210225
